FAERS Safety Report 23567519 (Version 2)
Quarter: 2024Q2

REPORT INFORMATION
  Report Type: Spontaneous
  Country: GB (occurrence: GB)
  Receive Date: 20240226
  Receipt Date: 20240502
  Transmission Date: 20240716
  Serious: Yes (Death, Hospitalization, Disabling, Other)
  Sender: FDA-Public Use
  Company Number: GB-GILEAD-2024-0662494

PATIENT
  Age: 68 Year
  Sex: Female
  Weight: 84 kg

DRUGS (25)
  1. TECARTUS [Suspect]
     Active Substance: BREXUCABTAGENE AUTOLEUCEL
     Indication: Mantle cell lymphoma
     Dosage: UNK
     Route: 065
     Dates: start: 20240116, end: 20240116
  2. LEVETIRACETAM [Concomitant]
     Active Substance: LEVETIRACETAM
     Indication: Immune effector cell-associated neurotoxicity syndrome
     Dosage: 500 MG, BID
     Route: 048
     Dates: start: 20240110, end: 20240121
  3. LEVETIRACETAM [Concomitant]
     Active Substance: LEVETIRACETAM
     Dosage: 500 MG, BID
     Route: 042
     Dates: start: 20240122, end: 20240123
  4. LEVETIRACETAM [Concomitant]
     Active Substance: LEVETIRACETAM
     Dosage: 750 MG
     Route: 042
     Dates: start: 20240123
  5. LEVETIRACETAM [Concomitant]
     Active Substance: LEVETIRACETAM
     Dosage: 1 GM
     Dates: start: 20240125
  6. LEVETIRACETAM [Concomitant]
     Active Substance: LEVETIRACETAM
     Dosage: 1.5 GM
     Dates: start: 20240129
  7. ACYCLOVIR [Concomitant]
     Active Substance: ACYCLOVIR
     Dosage: UNK
     Dates: start: 20240110
  8. ALLOPURINOL [Concomitant]
     Active Substance: ALLOPURINOL
     Dosage: UNK
     Dates: start: 20240111, end: 20240213
  9. APIXABAN [Concomitant]
     Active Substance: APIXABAN
     Dosage: UNK
     Dates: start: 20240110, end: 20240221
  10. BISOPROLOL [Concomitant]
     Active Substance: BISOPROLOL\BISOPROLOL FUMARATE
     Dosage: UNK
     Dates: start: 20240111, end: 20240216
  11. CHLORPHENIRAMINE MALEATE [Concomitant]
     Active Substance: CHLORPHENIRAMINE MALEATE
     Dosage: UNK
     Dates: start: 20240116, end: 20240116
  12. CYCLIZINE [Concomitant]
     Active Substance: CYCLIZINE
     Dosage: UNK
     Dates: start: 20240113, end: 20240122
  13. DOCUSATE [Concomitant]
     Active Substance: DOCUSATE
  14. DOMPERIDONE [Concomitant]
     Active Substance: DOMPERIDONE
  15. EPLERENONE [Concomitant]
     Active Substance: EPLERENONE
     Dosage: UNK
     Dates: start: 20240111
  16. FUROSEMIDE [Concomitant]
     Active Substance: FUROSEMIDE
     Dosage: UNK
     Dates: start: 20240114, end: 20240213
  17. HYDROCHLOROTHIAZIDE\LOSARTAN [Concomitant]
     Active Substance: HYDROCHLOROTHIAZIDE\LOSARTAN
     Dosage: UNK
     Dates: start: 20240111, end: 20240112
  18. HYDROCORTISONE [Concomitant]
     Active Substance: HYDROCORTISONE
  19. IBRUTINIB [Concomitant]
     Active Substance: IBRUTINIB
     Dosage: UNK
     Dates: start: 20240111, end: 20240122
  20. IBUPROFEN [Concomitant]
     Active Substance: IBUPROFEN
     Dosage: UNK
     Dates: start: 20240111, end: 20240111
  21. LANSOPRAZOLE [Concomitant]
     Active Substance: LANSOPRAZOLE
     Dosage: UNK
     Dates: start: 20240111
  22. NITROFURANTOIN [Concomitant]
     Active Substance: NITROFURANTOIN
     Dosage: UNK
     Dates: start: 20240115, end: 20240118
  23. ROSUVASTATIN [Concomitant]
     Active Substance: ROSUVASTATIN
     Dosage: UNK
     Dates: start: 20240110, end: 20240115
  24. SENNASID [SENNOSIDE A+B] [Concomitant]
     Dosage: UNK
     Dates: start: 20240110, end: 20240114
  25. ONDANSETRON [Concomitant]
     Active Substance: ONDANSETRON
     Dosage: UNK
     Dates: start: 20240110

REACTIONS (13)
  - Multiple organ dysfunction syndrome [Fatal]
  - Sepsis [Fatal]
  - Mantle cell lymphoma [Fatal]
  - Hypertension [Fatal]
  - Atrial fibrillation [Fatal]
  - Immune effector cell-associated neurotoxicity syndrome [Fatal]
  - Pancytopenia [Not Recovered/Not Resolved]
  - Azotaemia [Unknown]
  - Cytokine release syndrome [Recovered/Resolved]
  - Pleural effusion [Unknown]
  - Encephalopathy [Unknown]
  - Ascites [Unknown]
  - Hypoalbuminaemia [Unknown]

NARRATIVE: CASE EVENT DATE: 20240120
